FAERS Safety Report 9232743 (Version 2)
Quarter: 2013Q2

REPORT INFORMATION
  Report Type: Spontaneous
  Country: JP (occurrence: JP)
  Receive Date: 20130416
  Receipt Date: 20130524
  Transmission Date: 20140414
  Serious: Yes (Other)
  Sender: FDA-Public Use
  Company Number: JP-009507513-1304JPN005798

PATIENT
  Age: 85 Year
  Sex: Male

DRUGS (4)
  1. JANUVIA TABLETS 25MG [Suspect]
     Indication: DIABETES MELLITUS
     Dosage: 25 MG, QD
     Route: 048
     Dates: start: 20130315, end: 20130408
  2. AMARYL [Suspect]
     Indication: DIABETES MELLITUS
     Dosage: 1 MG, QD
     Route: 048
     Dates: start: 20120204, end: 20130408
  3. TULOBUTEROL [Concomitant]
     Dosage: 2 MG, QD
     Dates: start: 2006
  4. AMBROXOL HYDROCHLORIDE [Concomitant]

REACTIONS (2)
  - Altered state of consciousness [Recovered/Resolved]
  - Hypoglycaemia [Recovered/Resolved]
